FAERS Safety Report 7434835-8 (Version None)
Quarter: 2011Q2

REPORT INFORMATION
  Report Type: 
  Country: None (occurrence: None)
  Receive Date: 20110425
  Receipt Date: 20110414
  Transmission Date: 20111010
  Serious: Yes (Other)
  Sender: FDA-Public Use
  Company Number: US-ASTRAZENECA-2011SE21445

PATIENT
  Age: 20933 Day
  Sex: Female

DRUGS (3)
  1. METFORMIN [Suspect]
  2. JANUMET [Suspect]
  3. ATENOLOL [Suspect]

REACTIONS (1)
  - CEREBROVASCULAR ACCIDENT [None]
